FAERS Safety Report 8503504-5 (Version None)
Quarter: 2012Q3

REPORT INFORMATION
  Report Type: 
  Country: None (occurrence: None)
  Receive Date: 20120711
  Receipt Date: 20120711
  Transmission Date: 20120928
  Serious: Yes (Other)
  Sender: FDA-Public Use
  Company Number: DE-GLAXOSMITHKLINE-D0069639A

PATIENT
  Sex: Male

DRUGS (5)
  1. AVANDAMET [Suspect]
     Indication: DIABETES MELLITUS
     Dosage: 1002MG TWICE PER DAY
     Route: 048
     Dates: start: 20090101, end: 20101201
  2. MIRTAZAPINE [Concomitant]
     Dosage: 30MG PER DAY
     Route: 065
  3. RAMIPRIL [Concomitant]
     Dosage: 5MG PER DAY
     Route: 065
  4. VENLAFAXINE HYDROCHLORIDE [Concomitant]
     Dosage: 150MG PER DAY
     Route: 065
  5. SULPIRID [Concomitant]
     Dosage: 150MG THREE TIMES PER DAY
     Route: 065

REACTIONS (8)
  - DYSPNOEA [None]
  - CARDIAC DISORDER [None]
  - NERVOUSNESS [None]
  - ASTHENIA [None]
  - IRON DEFICIENCY ANAEMIA [None]
  - PALPITATIONS [None]
  - WEIGHT INCREASED [None]
  - BLOOD GLUCOSE ABNORMAL [None]
